FAERS Safety Report 10424037 (Version 2)
Quarter: 2014Q3

REPORT INFORMATION
  Report Type: Report from Study
  Country: AR (occurrence: AR)
  Receive Date: 20140902
  Receipt Date: 20140902
  Transmission Date: 20150326
  Serious: Yes (Other)
  Sender: FDA-Public Use
  Company Number: AR-ABBVIE-14K-007-1248749-00

PATIENT
  Age: 54 Year
  Sex: Female

DRUGS (1)
  1. HUMIRA [Suspect]
     Active Substance: ADALIMUMAB
     Indication: PSORIATIC ARTHROPATHY
     Route: 058
     Dates: start: 20130315

REACTIONS (4)
  - Saliva altered [Recovering/Resolving]
  - Dental caries [Recovering/Resolving]
  - Tooth loss [Unknown]
  - Tooth loss [Unknown]

NARRATIVE: CASE EVENT DATE: 201403
